FAERS Safety Report 7372972-7 (Version None)
Quarter: 2011Q1

REPORT INFORMATION
  Report Type: 
  Country: None (occurrence: None)
  Receive Date: 20110324
  Receipt Date: 20110309
  Transmission Date: 20110831
  Serious: Yes (Hospitalization)
  Sender: FDA-Public Use
  Company Number: JP-TYCO HEALTHCARE/MALLINCKRODT-T201100544

PATIENT
  Sex: Female
  Weight: 33.6 kg

DRUGS (7)
  1. OXINORM                            /00547301/ [Concomitant]
     Dosage: 150 MG, PRN
     Dates: end: 20110307
  2. BIOFERMIN [Concomitant]
     Dosage: 3 G, QD
  3. MEXITIL [Concomitant]
     Dosage: 300 MG, QD
     Dates: start: 20101224
  4. METHADONE [Suspect]
     Dosage: 210 MG, TID
     Route: 048
     Dates: start: 20110303, end: 20110307
  5. ZYPREXA [Concomitant]
     Dosage: 10 MG, QD
     Dates: start: 20110207
  6. METHADONE [Suspect]
     Indication: CANCER PAIN
     Dosage: 45 MG, QD
     Route: 048
     Dates: start: 20101217, end: 20110126
  7. METHADONE [Suspect]
     Dosage: 165 MG, TID
     Dates: start: 20110127, end: 20110302

REACTIONS (2)
  - ENTEROCOLITIS BACTERIAL [None]
  - CANCER PAIN [None]
